FAERS Safety Report 8809519 (Version 1)
Quarter: 2012Q4

REPORT INFORMATION
  Report Type: 
  Country: US (occurrence: US)
  Receive Date: 20120926
  Receipt Date: 20120926
  Transmission Date: 20130627
  Serious: Yes (Other)
  Sender: FDA-Public Use
  Company Number: US-ROCHE-1101406

PATIENT
  Age: 66 Year
  Sex: Male

DRUGS (4)
  1. ACTIVASE [Suspect]
     Indication: ACUTE MYOCARDIAL INFARCTION
     Route: 065
     Dates: start: 19960205
  2. HEPARIN [Concomitant]
  3. NITROGLYCERINE [Concomitant]
  4. ISMO [Concomitant]
     Route: 065

REACTIONS (5)
  - Heart sounds abnormal [Unknown]
  - Dyspnoea [Unknown]
  - Bradycardia [Unknown]
  - Hypotension [Unknown]
  - Pyrexia [Unknown]
